FAERS Safety Report 5385417-3 (Version None)
Quarter: 2007Q3

REPORT INFORMATION
  Report Type: 
  Country: None (occurrence: None)
  Receive Date: 20070706
  Receipt Date: 20070706
  Transmission Date: 20080115
  Serious: Yes (Hospitalization)
  Sender: FDA-Public Use
  Company Number: None

PATIENT
  Age: 64 Year
  Sex: Female
  Weight: 92.0802 kg

DRUGS (10)
  1. PHOSPHOSODA FLAVOR NOT SPECIFIED [Suspect]
     Indication: COLONOSCOPY
     Dosage: 45 ML;X1;PO
     Route: 048
     Dates: start: 20070416
  2. ASPIRIN [Concomitant]
  3. AVANDIA [Concomitant]
  4. GLYBURIDE [Concomitant]
  5. METFORMIN HCL [Concomitant]
  6. HYDROCHLOROTHIAZIDE [Concomitant]
  7. AMLODIPINE [Concomitant]
  8. BENAZEPRIL HYDROCHLORIDE [Concomitant]
  9. LOVASTATIN [Concomitant]
  10. NIACIN [Concomitant]

REACTIONS (5)
  - CHILLS [None]
  - ILEUS [None]
  - NEPHROCALCINOSIS [None]
  - PYREXIA [None]
  - RENAL FAILURE ACUTE [None]
